FAERS Safety Report 10023428 (Version 2)
Quarter: 2014Q1

REPORT INFORMATION
  Report Type: Spontaneous
  Country: CA (occurrence: CA)
  Receive Date: 20140320
  Receipt Date: 20140321
  Transmission Date: 20141002
  Serious: Yes (Other)
  Sender: FDA-Public Use
  Company Number: CA-009507513-1403CAN007499

PATIENT
  Age: 61 Year
  Sex: Male
  Weight: 75 kg

DRUGS (3)
  1. RIBAVIRIN [Suspect]
     Indication: HEPATITIS C
     Dosage: 1200(UNIT UNKNOWN), BID
     Route: 048
     Dates: start: 20120217, end: 20130117
  2. PEGASYS [Suspect]
     Indication: HEPATITIS C
     Dosage: 180(UNIT UNKNOWN), QW
     Route: 058
     Dates: start: 20120217, end: 20130117
  3. VICTRELIS [Concomitant]
     Indication: HEPATITIS C
     Dosage: 800 MG, Q8H
     Route: 048
     Dates: start: 20120317, end: 20130117

REACTIONS (1)
  - Pulmonary embolism [Recovering/Resolving]
